FAERS Safety Report 4534117-8 (Version None)
Quarter: 2004Q4

REPORT INFORMATION
  Report Type: 
  Country: None (occurrence: None)
  Receive Date: 20041029
  Receipt Date: 20041029
  Transmission Date: 20050328
  Serious: Yes (Other)
  Sender: FDA-Public Use
  Company Number: None

PATIENT

DRUGS (2)
  1. ELAVIL [Suspect]
     Dosage: TABS
  2. DESERYL 50 MG [Suspect]
     Dosage: TABS

REACTIONS (1)
  - MEDICATION ERROR [None]
